FAERS Safety Report 6647251-3 (Version None)
Quarter: 2010Q1

REPORT INFORMATION
  Report Type: 
  Country: None (occurrence: None)
  Receive Date: 20100323
  Receipt Date: 20100317
  Transmission Date: 20100710
  Serious: Yes (Other)
  Sender: FDA-Public Use
  Company Number: A0850652A

PATIENT
  Age: 12 Year
  Sex: Male

DRUGS (2)
  1. AMERGE [Suspect]
     Indication: MIGRAINE PROPHYLAXIS
     Route: 048
     Dates: start: 20100316
  2. UNKNOWN [Concomitant]

REACTIONS (2)
  - HAEMATOCHEZIA [None]
  - HYPOAESTHESIA [None]
